FAERS Safety Report 4916341-5 (Version None)
Quarter: 2006Q1

REPORT INFORMATION
  Report Type: 
  Country: None (occurrence: None)
  Receive Date: 20060217
  Receipt Date: 20050729
  Transmission Date: 20060701
  Serious: Yes (Hospitalization, Disabling)
  Sender: FDA-Public Use
  Company Number: US-MERCK-0508USA00104

PATIENT
  Age: 37 Year
  Sex: Male
  Weight: 89 kg

DRUGS (6)
  1. VIOXX [Suspect]
     Indication: ARTHRITIS
     Route: 048
     Dates: start: 20010201, end: 20030801
  2. METHOTREXATE [Concomitant]
     Route: 065
  3. ATENOLOL [Concomitant]
     Route: 065
  4. PREDNISONE [Concomitant]
     Route: 065
  5. FOLIC ACID [Concomitant]
     Route: 065
  6. RANITIDINE [Concomitant]
     Route: 065

REACTIONS (10)
  - ANXIETY [None]
  - ARTHROPATHY [None]
  - CARPAL TUNNEL SYNDROME [None]
  - CORONARY ARTERY DISEASE [None]
  - GENERAL PHYSICAL HEALTH DETERIORATION [None]
  - JOINT SWELLING [None]
  - MALAISE [None]
  - MYOCARDIAL INFARCTION [None]
  - OVERDOSE [None]
  - ROTATOR CUFF REPAIR [None]
